FAERS Safety Report 8392075-2 (Version None)
Quarter: 2012Q2

REPORT INFORMATION
  Report Type: 
  Country: None (occurrence: None)
  Receive Date: 20120529
  Receipt Date: 20120522
  Transmission Date: 20120825
  Serious: Yes (Hospitalization)
  Sender: FDA-Public Use
  Company Number: US-B.I. PHARMACEUTICALS,INC./RIDGEFIELD-2012-BP-06962BP

PATIENT
  Age: 72 Year
  Sex: Male
  Weight: 55 kg

DRUGS (6)
  1. LIPITOR [Concomitant]
  2. TOPROL-XL [Concomitant]
  3. MULTIVITS [Concomitant]
  4. PRADAXA [Suspect]
     Dates: start: 20110801
  5. ASPIRIN [Concomitant]
  6. FLOMAX [Concomitant]

REACTIONS (1)
  - SUBDURAL HAEMATOMA [None]
